FAERS Safety Report 15866106 (Version 4)
Quarter: 2019Q1

REPORT INFORMATION
  Report Type: Spontaneous
  Country: US (occurrence: US)
  Receive Date: 20190125
  Receipt Date: 20190314
  Transmission Date: 20190417
  Serious: Yes (Hospitalization, Other)
  Sender: FDA-Public Use
  Company Number: US-009507513-1901USA009336

PATIENT

DRUGS (2)
  1. PROVENTIL [Suspect]
     Active Substance: ALBUTEROL
     Dosage: UNK
  2. PROVENTIL [Suspect]
     Active Substance: ALBUTEROL
     Dosage: UNK

REACTIONS (5)
  - Product quality issue [Unknown]
  - Incorrect dose administered by product [Unknown]
  - Pneumonia [Unknown]
  - Speech disorder [Unknown]
  - Poor quality device used [Unknown]

NARRATIVE: CASE EVENT DATE: 201809
